FAERS Safety Report 20024492 (Version 1)
Quarter: 2021Q4

REPORT INFORMATION
  Report Type: Spontaneous
  Country: GB (occurrence: GB)
  Receive Date: 20211102
  Receipt Date: 20211102
  Transmission Date: 20220303
  Serious: Yes (Other)
  Sender: FDA-Public Use
  Company Number: None

PATIENT
  Age: 84 Year
  Sex: Male
  Weight: 75 kg

DRUGS (15)
  1. BETAMETHASONE DIPROPIONATE\CLOTRIMAZOLE [Suspect]
     Active Substance: BETAMETHASONE DIPROPIONATE\CLOTRIMAZOLE
     Indication: Acquired phimosis
     Dosage: UNK
     Route: 003
  2. COLCHICINE [Concomitant]
     Active Substance: COLCHICINE
     Dosage: 500 MICROGRAM
     Dates: start: 20211026
  3. DERMOL [BENZALKONIUM CHLORIDE;CHLORHEXIDINE HYDROCHLORIDE;ISOPROPYL MY [Concomitant]
     Dosage: USE AS SOAP
     Dates: start: 20211005
  4. EPLERENONE [Concomitant]
     Active Substance: EPLERENONE
     Dosage: 25 MILLIGRAM
     Dates: start: 20211007
  5. FLUCLOXACILLIN [Concomitant]
     Active Substance: FLUCLOXACILLIN
     Dosage: 500 MILLIGRAM
     Dates: start: 20211005
  6. FUROSEMIDE [Concomitant]
     Active Substance: FUROSEMIDE
     Dosage: 40 MILLIGRAM
     Dates: start: 20211007
  7. MICONAZOLE [Concomitant]
     Active Substance: MICONAZOLE
     Dosage: 1 DOSAGE FORM
     Dates: start: 20211026
  8. HYDROCORTISONE [Concomitant]
     Active Substance: HYDROCORTISONE
     Dosage: 1 DOSAGE FORM
     Dates: start: 20211026
  9. LANSOPRAZOLE [Concomitant]
     Active Substance: LANSOPRAZOLE
     Dosage: 30 MILLIGRAM
     Dates: start: 20211007
  10. MEBENDAZOLE [Concomitant]
     Active Substance: MEBENDAZOLE
     Dosage: 100 MILLIGRAM, TAKE ONE TABLET IMMEDIATELY
     Dates: start: 20211005
  11. METFORMIN [Concomitant]
     Active Substance: METFORMIN HYDROCHLORIDE
     Dosage: 500 MILLIGRAM, ALONG WITH 1G TABLET
     Dates: start: 20210902
  12. MAGNASPARTATE [Concomitant]
     Dosage: 1 DOSAGE FORM, THEN REPEAT BLOODS
     Dates: start: 20210812
  13. MAGNASPARTATE [Concomitant]
     Dosage: 1 DOSAGE FORM, THEN REPEAT BLOODS
     Dates: start: 20210806
  14. SACUBITRIL\VALSARTAN [Concomitant]
     Active Substance: SACUBITRIL\VALSARTAN
     Dosage: MORNING AND NIGHT.
     Dates: start: 20210809
  15. CHLORTETRACYCLINE\CLOBETASONE\NYSTATIN [Concomitant]
     Active Substance: CHLORTETRACYCLINE\CLOBETASONE\NYSTATIN
     Dosage: 1 DOSAGE FORM, CALL BACK IN 2 WEEKS
     Dates: start: 20210823

REACTIONS (1)
  - Gout [Recovered/Resolved]

NARRATIVE: CASE EVENT DATE: 20211022
